FAERS Safety Report 5848250-1 (Version None)
Quarter: 2008Q3

REPORT INFORMATION
  Report Type: 
  Country: None (occurrence: None)
  Receive Date: 20080818
  Receipt Date: 20080811
  Transmission Date: 20090109
  Serious: Yes (Other)
  Sender: FDA-Public Use
  Company Number: JP-BRISTOL-MYERS SQUIBB COMPANY-14298996

PATIENT
  Age: 53 Year
  Sex: Female

DRUGS (10)
  1. CEFEPIME [Suspect]
     Indication: SEPSIS
  2. ALLOPURINOL [Suspect]
     Indication: PROPHYLAXIS
  3. CYTARABINE [Suspect]
     Indication: ACUTE MYELOMONOCYTIC LEUKAEMIA
  4. IDARUBICIN HCL [Suspect]
     Indication: ACUTE MYELOMONOCYTIC LEUKAEMIA
  5. TOSUFLOXACIN [Suspect]
     Indication: SEPSIS
  6. FLUCONAZOLE [Suspect]
     Indication: BRONCHOPULMONARY ASPERGILLOSIS
  7. VANCOMYCIN [Suspect]
     Indication: SEPSIS
  8. MEROPENEM [Suspect]
     Indication: SEPSIS
  9. MICAFUNGIN SODIUM [Suspect]
     Indication: BRONCHOPULMONARY ASPERGILLOSIS
  10. VORICONAZOLE [Suspect]
     Indication: BRONCHOPULMONARY ASPERGILLOSIS

REACTIONS (1)
  - DRUG RASH WITH EOSINOPHILIA AND SYSTEMIC SYMPTOMS [None]
